FAERS Safety Report 16573412 (Version 2)
Quarter: 2024Q4

REPORT INFORMATION
  Report Type: Spontaneous
  Country: DE (occurrence: DE)
  Receive Date: 20190715
  Receipt Date: 20241219
  Transmission Date: 20250114
  Serious: Yes (Hospitalization, Other)
  Sender: SAMSUNG BIOEPIS
  Company Number: DE-EMA-DD-20190212-AGRAHARI_P-191015

PATIENT
  Age: 61 Year
  Sex: Male

DRUGS (3)
  1. INFLIXIMAB [Suspect]
     Active Substance: INFLIXIMAB
     Indication: Colitis ulcerative
     Dosage: 5 MG/KG, BW
  2. AZATHIOPRINE [Suspect]
     Active Substance: AZATHIOPRINE
     Indication: Colitis ulcerative
     Dosage: 2.5 MG/KG, BW (MAINTENANCE THERAPY)
  3. CYCLOSPORINE [Suspect]
     Active Substance: CYCLOSPORINE
     Indication: Colitis ulcerative
     Dosage: 4 MG/KG, BW (INDUCTION THERAPY)

REACTIONS (3)
  - Cytomegalovirus colitis [Recovered/Resolved]
  - Isosporiasis [Recovered/Resolved]
  - Therapy non-responder [Unknown]
